FAERS Safety Report 24078905 (Version 1)
Quarter: 2024Q3

REPORT INFORMATION
  Report Type: Spontaneous
  Country: CN (occurrence: CN)
  Receive Date: 20240711
  Receipt Date: 20240711
  Transmission Date: 20241017
  Serious: Yes (Other)
  Sender: BAYER
  Company Number: CN-BAYER-2024A099691

PATIENT
  Age: 67 Year
  Sex: Female
  Weight: 47.5 kg

DRUGS (4)
  1. ULTRAVIST [Suspect]
     Active Substance: IOPROMIDE
     Indication: Computerised tomogram abdomen
     Dosage: 70 ML, ONCE
     Route: 042
     Dates: start: 20240630, end: 20240630
  2. ULTRAVIST [Suspect]
     Active Substance: IOPROMIDE
     Indication: Abdominal pain lower
  3. ULTRAVIST [Suspect]
     Active Substance: IOPROMIDE
     Indication: Functional gastrointestinal disorder
  4. ULTRAVIST [Suspect]
     Active Substance: IOPROMIDE
     Indication: Gastrointestinal neoplasm

REACTIONS (5)
  - Pruritus [Recovering/Resolving]
  - Eyelid oedema [Recovering/Resolving]
  - Flushing [Recovering/Resolving]
  - Dysphonia [Recovering/Resolving]
  - Respiratory rate increased [None]

NARRATIVE: CASE EVENT DATE: 20240630
